FAERS Safety Report 16907204 (Version 1)
Quarter: 2019Q4

REPORT INFORMATION
  Report Type: Spontaneous
  Country: CN (occurrence: CN)
  Receive Date: 20191011
  Receipt Date: 20191011
  Transmission Date: 20200122
  Serious: Yes (Hospitalization, Other)
  Sender: FDA-Public Use
  Company Number: CN-ROCHE-2426959

PATIENT
  Age: 70 Year
  Sex: Male
  Weight: 60 kg

DRUGS (7)
  1. AVASTIN [Suspect]
     Active Substance: BEVACIZUMAB
     Indication: LUNG NEOPLASM MALIGNANT
     Route: 041
     Dates: start: 20190902, end: 20190902
  2. PACLITAXEL LIPOSOME [Suspect]
     Active Substance: PACLITAXEL
     Indication: LUNG NEOPLASM MALIGNANT
     Route: 041
     Dates: start: 20190902, end: 20190902
  3. SODIUM CHLORIDE. [Concomitant]
     Active Substance: SODIUM CHLORIDE
     Dosage: LOT NO. C19052009
     Route: 041
     Dates: start: 20190902, end: 20190902
  4. GLUCOSE INJECTION [Concomitant]
     Active Substance: DEXTROSE
     Indication: LUNG NEOPLASM MALIGNANT
     Route: 041
     Dates: start: 20190902, end: 20190902
  5. SODIUM CHLORIDE. [Concomitant]
     Active Substance: SODIUM CHLORIDE
     Dosage: SOLVENT, LOT NO. B19052304
     Route: 041
     Dates: start: 20190902, end: 20190902
  6. SODIUM CHLORIDE. [Concomitant]
     Active Substance: SODIUM CHLORIDE
     Dosage: LOT NO. C19052009
     Route: 041
     Dates: start: 20190902, end: 20190902
  7. NEDAPLATIN [Suspect]
     Active Substance: NEDAPLATIN
     Indication: LUNG NEOPLASM MALIGNANT
     Route: 041
     Dates: start: 20190902, end: 20190902

REACTIONS (4)
  - Asthenia [Unknown]
  - Bone marrow failure [Recovering/Resolving]
  - Pyrexia [Recovering/Resolving]
  - White blood cell count decreased [Recovering/Resolving]

NARRATIVE: CASE EVENT DATE: 20190903
